FAERS Safety Report 5935016-7 (Version None)
Quarter: 2008Q4

REPORT INFORMATION
  Report Type: 
  Country: None (occurrence: None)
  Receive Date: 20081014
  Receipt Date: 20080814
  Transmission Date: 20090506
  Serious: Yes (Hospitalization, Disabling)
  Sender: FDA-Public Use
  Company Number: SP02032

PATIENT
  Age: 56 Year
  Sex: Female
  Weight: 62.1428 kg

DRUGS (6)
  1. OSMOPREP [Suspect]
     Indication: COLONOSCOPY
     Dosage: ORAL
     Route: 048
     Dates: start: 20080803, end: 20080803
  2. OSMOPREP [Suspect]
     Indication: COLONOSCOPY
     Dosage: ORAL
     Route: 048
     Dates: start: 20080803, end: 20080804
  3. PLAQUENIL [Concomitant]
  4. NEXIUM [Concomitant]
  5. FLEXERIL [Concomitant]
  6. BENICAR [Concomitant]

REACTIONS (2)
  - BLOOD CREATININE INCREASED [None]
  - RENAL FAILURE ACUTE [None]
